FAERS Safety Report 6319031-X (Version None)
Quarter: 2009Q3

REPORT INFORMATION
  Report Type: 
  Country: None (occurrence: None)
  Receive Date: 20090821
  Receipt Date: 20080728
  Transmission Date: 20100115
  Serious: No
  Sender: FDA-Public Use
  Company Number: US-ABBOTT-08P-163-0466062-00

PATIENT
  Sex: Male

DRUGS (2)
  1. NIASPAN [Suspect]
     Indication: DRUG USE FOR UNKNOWN INDICATION
     Dosage: ONE DAILY, COATED
     Route: 048
  2. NIASPAN [Suspect]
     Dosage: ONE DAILY, UNCOATED
     Route: 048

REACTIONS (1)
  - RASH [None]
